FAERS Safety Report 4612043-3 (Version None)
Quarter: 2005Q2

REPORT INFORMATION
  Report Type: 
  Country: None (occurrence: None)
  Receive Date: 20050308
  Receipt Date: 20050104
  Transmission Date: 20051028
  Serious: Yes (Other)
  Sender: FDA-Public Use
  Company Number: 2005UW00153

PATIENT
  Age: 54 Year
  Sex: Male
  Weight: 112 kg

DRUGS (6)
  1. CRESTOR [Suspect]
     Indication: BLOOD CHOLESTEROL INCREASED
     Dosage: 10 MG DAILY
  2. ENALAPRIL MALEATE [Concomitant]
  3. TOPROL-XL [Concomitant]
  4. SYNTHROID [Concomitant]
  5. PIROXICAM [Concomitant]
  6. ALLEGRA [Concomitant]

REACTIONS (1)
  - BLOOD GLUCOSE INCREASED [None]
